FAERS Safety Report 20792967 (Version 1)
Quarter: 2022Q2

REPORT INFORMATION
  Report Type: Spontaneous
  Country: US (occurrence: US)
  Receive Date: 20220506
  Receipt Date: 20220506
  Transmission Date: 20220721
  Serious: No
  Sender: FDA-Public Use
  Company Number: US-UCBSA-2021029850

PATIENT
  Sex: Female

DRUGS (2)
  1. CIMZIA [Suspect]
     Active Substance: CERTOLIZUMAB PEGOL
     Indication: Rheumatoid arthritis
     Dosage: 400 MILLIGRAM, EV 2 WEEKS(QOW)
     Route: 058
     Dates: start: 20201203
  2. PLAVIX [Concomitant]
     Active Substance: CLOPIDOGREL BISULFATE
     Indication: Product used for unknown indication

REACTIONS (6)
  - Injection site haemorrhage [Unknown]
  - Injection site pain [Unknown]
  - Rheumatoid arthritis [Unknown]
  - Eye disorder [Unknown]
  - Central venous catheterisation [Unknown]
  - Product storage error [Unknown]

NARRATIVE: CASE EVENT DATE: 20210101
